FAERS Safety Report 10904218 (Version 1)
Quarter: 2015Q1

REPORT INFORMATION
  Report Type: Spontaneous
  Country: US (occurrence: None)
  Receive Date: 20150107
  Receipt Date: 20150107
  Transmission Date: 20150721
  Serious: No
  Sender: FDA-Public Use
  Company Number: 2014TUS012018

PATIENT
  Age: 57 Year
  Sex: Female
  Weight: 83.9 kg

DRUGS (2)
  1. CONTRAVE [Suspect]
     Active Substance: BUPROPION HYDROCHLORIDE\NALTREXONE HYDROCHLORIDE
     Indication: OVERWEIGHT
     Dosage: 8/90 MG, QAM, ORAL
     Route: 048
     Dates: start: 201411, end: 201411
  2. SYNTHROID [Concomitant]
     Active Substance: LEVOTHYROXINE SODIUM

REACTIONS (7)
  - Hostility [None]
  - Anxiety [None]
  - Insomnia [None]
  - Restlessness [None]
  - Aggression [None]
  - Irritability [None]
  - Agitation [None]

NARRATIVE: CASE EVENT DATE: 201411
